FAERS Safety Report 4998738-0 (Version None)
Quarter: 2006Q2

REPORT INFORMATION
  Report Type: 
  Country: None (occurrence: None)
  Receive Date: 20060508
  Receipt Date: 20060313
  Transmission Date: 20061013
  Serious: Yes (Life-Threatening)
  Sender: FDA-Public Use
  Company Number: 6021318

PATIENT
  Age: 37 Year
  Sex: Female

DRUGS (1)
  1. EUTIROX  (LEVOTHYROXINE SODIUM) [Suspect]
     Indication: POST PROCEDURAL HYPOTHYROIDISM
     Dosage: 200,000 MCG (100 MCG 2 IN 1 D)
     Route: 048
     Dates: start: 19850101, end: 20060121

REACTIONS (4)
  - ASTHENIA [None]
  - BLOOD THYROID STIMULATING HORMONE INCREASED [None]
  - DRUG INEFFECTIVE [None]
  - GENERALISED OEDEMA [None]
